FAERS Safety Report 7121975-6 (Version None)
Quarter: 2010Q4

REPORT INFORMATION
  Report Type: 
  Country: None (occurrence: None)
  Receive Date: 20101124
  Receipt Date: 20101117
  Transmission Date: 20110411
  Serious: Yes (Hospitalization, Congenital Anomaly)
  Sender: FDA-Public Use
  Company Number: A0847403A

PATIENT
  Sex: Male

DRUGS (6)
  1. PAXIL [Suspect]
     Dosage: 20MG PER DAY
  2. CLARITIN-D [Concomitant]
  3. IBUPROFEN [Concomitant]
  4. PRENATAL VITAMINS [Concomitant]
  5. PROVENTIL [Concomitant]
  6. FOLIC ACID [Concomitant]

REACTIONS (18)
  - ACROCHORDON [None]
  - AMNIOTIC BAND SYNDROME [None]
  - ARNOLD-CHIARI MALFORMATION [None]
  - CEREBRAL VENTRICLE DILATATION [None]
  - CONGENITAL CENTRAL NERVOUS SYSTEM ANOMALY [None]
  - CONGENITAL HYDROCEPHALUS [None]
  - CONVULSION [None]
  - DRUG EXPOSURE DURING PREGNANCY [None]
  - EPILEPSY [None]
  - FINGER HYPOPLASIA [None]
  - MULTIPLE CONGENITAL ABNORMALITIES [None]
  - PARAPLEGIA [None]
  - PENIS DISORDER [None]
  - POLYDACTYLY [None]
  - SPINA BIFIDA [None]
  - SYNDACTYLY [None]
  - TALIPES [None]
  - UNIVENTRICULAR HEART [None]
